FAERS Safety Report 10101999 (Version 1)
Quarter: 2014Q2

REPORT INFORMATION
  Report Type: Spontaneous
  Country: DE (occurrence: DE)
  Receive Date: 20140424
  Receipt Date: 20140424
  Transmission Date: 20141212
  Serious: Yes (Hospitalization, Other)
  Sender: FDA-Public Use
  Company Number: DE-UCBSA-118427

PATIENT
  Sex: Female

DRUGS (1)
  1. KEPPRA [Suspect]
     Dosage: VIA TUBE

REACTIONS (3)
  - Investigation [Unknown]
  - Apallic syndrome [Not Recovered/Not Resolved]
  - Wrong technique in drug usage process [Unknown]
